FAERS Safety Report 25002708 (Version 5)
Quarter: 2025Q1

REPORT INFORMATION
  Report Type: Report from Study
  Country: JP (occurrence: JP)
  Receive Date: 20250224
  Receipt Date: 20250326
  Transmission Date: 20250408
  Serious: Yes (Hospitalization)
  Sender: ABBVIE
  Company Number: JP-ABBVIE-6145448

PATIENT
  Age: 25 Year
  Sex: Female
  Weight: 48 kg

DRUGS (10)
  1. RISANKIZUMAB [Suspect]
     Active Substance: RISANKIZUMAB
     Indication: Crohn^s disease
     Route: 058
     Dates: start: 20240328, end: 20250116
  2. RISANKIZUMAB [Suspect]
     Active Substance: RISANKIZUMAB
     Indication: Crohn^s disease
     Route: 042
     Dates: start: 20231228, end: 20240229
  3. MAGNESIUM OXIDE [Concomitant]
     Active Substance: MAGNESIUM OXIDE
     Indication: Crohn^s disease
     Route: 048
     Dates: start: 20240801, end: 20250216
  4. MIYA-BM [Concomitant]
     Active Substance: CLOSTRIDIUM BUTYRICUM SPORES STRAIN M-55
     Indication: Crohn^s disease
     Route: 048
     Dates: start: 20240709
  5. AZUNOL [Concomitant]
     Indication: Crohn^s disease
     Route: 061
     Dates: start: 20240514
  6. RINDERON [Concomitant]
     Indication: Crohn^s disease
     Route: 050
     Dates: start: 20241022
  7. IMURAN [Concomitant]
     Active Substance: AZATHIOPRINE
     Indication: Crohn^s disease
     Route: 048
     Dates: start: 20250130, end: 20250212
  8. IMURAN [Concomitant]
     Active Substance: AZATHIOPRINE
     Indication: Crohn^s disease
     Route: 048
     Dates: start: 20250213
  9. RINDERON [Concomitant]
     Indication: Crohn^s disease
     Route: 050
     Dates: start: 20241022
  10. INFLIXIMAB [Concomitant]
     Active Substance: INFLIXIMAB
     Indication: Crohn^s disease
     Route: 041
     Dates: start: 20250213

REACTIONS (1)
  - Ileus [Recovered/Resolved]

NARRATIVE: CASE EVENT DATE: 20250217
